FAERS Safety Report 19656491 (Version 1)
Quarter: 2021Q3

REPORT INFORMATION
  Report Type: Report from Study
  Country: ES (occurrence: ES)
  Receive Date: 20210804
  Receipt Date: 20210804
  Transmission Date: 20211014
  Serious: Yes (Hospitalization)
  Sender: FDA-Public Use
  Company Number: ES-TEVA-2021-ES-1938483

PATIENT
  Age: 33 Year
  Sex: Male

DRUGS (5)
  1. IVABRADINA (2992A) [Suspect]
     Active Substance: IVABRADINE
     Dosage: 10 MG
     Route: 048
     Dates: start: 20200323, end: 20200331
  2. AMOXICILINA + ACIDO CLAVULANICO [Concomitant]
     Active Substance: AMOXICILLIN\CLAVULANIC ACID
     Indication: COVID-19
     Dosage: 3 GRAM
     Route: 042
     Dates: start: 20200323, end: 20200324
  3. ACENOCUMAROL (220A) [Concomitant]
     Active Substance: ACENOCOUMAROL
     Route: 048
     Dates: start: 20200323, end: 20200326
  4. HIDROXICLOROQUINA SULFATO (2143SU) [Suspect]
     Active Substance: HYDROXYCHLOROQUINE SULFATE
     Indication: COVID-19
     Dosage: 2.4 GRAM
     Route: 048
     Dates: start: 20200323, end: 20200327
  5. FUROSEMIDA (1615A) [Concomitant]
     Active Substance: FUROSEMIDE
     Dosage: 60 MG
     Route: 042
     Dates: start: 20200323, end: 20200328

REACTIONS (1)
  - Long QT syndrome [Recovered/Resolved]

NARRATIVE: CASE EVENT DATE: 20200327
